FAERS Safety Report 12308256 (Version 2)
Quarter: 2016Q3

REPORT INFORMATION
  Report Type: Spontaneous
  Country: US (occurrence: US)
  Receive Date: 20160426
  Receipt Date: 20160708
  Transmission Date: 20161109
  Serious: Yes (Other)
  Sender: FDA-Public Use
  Company Number: US-009507513-1604USA013304

PATIENT
  Sex: Male

DRUGS (10)
  1. CRIXIVAN [Suspect]
     Active Substance: INDINAVIR SULFATE
     Indication: HIV INFECTION
     Dosage: UNK
     Dates: start: 2004
  2. HARVONI [Suspect]
     Active Substance: LEDIPASVIR\SOFOSBUVIR
     Indication: HEPATITIS C
  3. TRUVADA [Suspect]
     Active Substance: EMTRICITABINE\TENOFOVIR DISOPROXIL FUMARATE
  4. ISENTRESS [Suspect]
     Active Substance: RALTEGRAVIR POTASSIUM
     Indication: HIV INFECTION
     Dosage: UNK
     Route: 048
     Dates: start: 2004
  5. OXYCONTIN [Suspect]
     Active Substance: OXYCODONE HYDROCHLORIDE
     Indication: MIGRAINE
  6. ERGOTAMINE TARTRATE [Suspect]
     Active Substance: ERGOTAMINE TARTRATE
     Indication: MIGRAINE
  7. REBETOL [Suspect]
     Active Substance: RIBAVIRIN
     Indication: HIV INFECTION
     Dosage: UNK
     Route: 048
  8. INTERFERON (UNSPECIFIED) [Suspect]
     Active Substance: UNSPECIFIED INGREDIENT
     Indication: HIV INFECTION
     Dosage: UNK
  9. DILAUDID [Suspect]
     Active Substance: HYDROMORPHONE HYDROCHLORIDE
     Indication: MIGRAINE
  10. DEMEROL [Suspect]
     Active Substance: MEPERIDINE HYDROCHLORIDE
     Indication: MIGRAINE

REACTIONS (9)
  - Drug dependence [Unknown]
  - Migraine [Not Recovered/Not Resolved]
  - Gout [Not Recovered/Not Resolved]
  - Drug ineffective [Not Recovered/Not Resolved]
  - Hepatic cirrhosis [Not Recovered/Not Resolved]
  - Drug dose omission [Unknown]
  - Bladder disorder [Not Recovered/Not Resolved]
  - Memory impairment [Not Recovered/Not Resolved]
  - Erectile dysfunction [Not Recovered/Not Resolved]
